FAERS Safety Report 12764421 (Version 1)
Quarter: 2016Q3

REPORT INFORMATION
  Report Type: Spontaneous
  Country: NZ (occurrence: NZ)
  Receive Date: 20160920
  Receipt Date: 20160920
  Transmission Date: 20161109
  Serious: Yes (Other)
  Sender: FDA-Public Use
  Company Number: NZ-GLAXOSMITHKLINE-NZ2016GSK135421

PATIENT
  Sex: Male

DRUGS (1)
  1. NICOTINE. [Suspect]
     Active Substance: NICOTINE
     Indication: SMOKING CESSATION THERAPY
     Dosage: UNK, 3 TO 4 TIMES

REACTIONS (5)
  - Myocardial infarction [Unknown]
  - Seizure [Unknown]
  - Pruritus [Unknown]
  - Drug ineffective [Unknown]
  - Rhinorrhoea [Unknown]
